FAERS Safety Report 24565159 (Version 6)
Quarter: 2025Q1

REPORT INFORMATION
  Report Type: Spontaneous
  Country: FR (occurrence: FR)
  Receive Date: 20241030
  Receipt Date: 20250327
  Transmission Date: 20250409
  Serious: Yes (Death, Congenital Anomaly, Other)
  Sender: AUROBINDO
  Company Number: FR-AFSSAPS-PO2024001121

PATIENT
  Age: 20 Year
  Sex: Female
  Weight: 67 kg

DRUGS (5)
  1. ENTECAVIR [Suspect]
     Active Substance: ENTECAVIR
     Indication: Product used for unknown indication
     Dosage: 200 MILLIGRAM, ONCE A DAY
     Route: 065
     Dates: start: 20231110, end: 20240202
  2. TENOFOVIR DISOPROXIL [Suspect]
     Active Substance: TENOFOVIR DISOPROXIL
     Indication: HIV infection
     Dosage: 245 MILLIGRAM, ONCE A DAY
     Route: 064
     Dates: start: 20231110, end: 20240202
  3. DOVATO [Suspect]
     Active Substance: DOLUTEGRAVIR SODIUM\LAMIVUDINE
     Indication: HIV infection
     Dosage: 1 DOSAGE FORM, ONCE A DAY
     Route: 064
     Dates: start: 20240202, end: 20240419
  4. TIVICAY [Suspect]
     Active Substance: DOLUTEGRAVIR SODIUM
     Indication: HIV infection
     Dosage: 1 DOSAGE FORM, ONCE A DAY (2)
     Route: 064
     Dates: start: 20231110, end: 20240202
  5. EMTRICITABINE [Suspect]
     Active Substance: EMTRICITABINE
     Indication: HIV infection
     Dosage: 200 MILLIGRAM, ONCE A DAY 2 EXPOSURE
     Route: 064
     Dates: start: 20231110, end: 20240202

REACTIONS (2)
  - Foetal death [Fatal]
  - Maternal exposure during pregnancy [Recovered/Resolved]

NARRATIVE: CASE EVENT DATE: 20231110
